FAERS Safety Report 5460927-9 (Version None)
Quarter: 2007Q3

REPORT INFORMATION
  Report Type: 
  Country: None (occurrence: None)
  Receive Date: 20070810
  Receipt Date: 20061113
  Transmission Date: 20080115
  Serious: Yes (Other)
  Sender: FDA-Public Use
  Company Number: 200616392BWH

PATIENT
  Sex: Male

DRUGS (5)
  1. TRASYLOL [Suspect]
     Indication: MITRAL VALVE REPLACEMENT
     Dosage: 1 ML, ONCE INTRAVENOUS, 200 ML, ONCE, INTRAVENOUS
     Route: 042
     Dates: start: 20061113
  2. TRASYLOL [Suspect]
     Indication: MITRAL VALVE REPLACEMENT
     Dosage: 1 ML, ONCE INTRAVENOUS, 200 ML, ONCE, INTRAVENOUS
     Route: 042
     Dates: start: 20061113
  3. PROTONIX [Concomitant]
  4. TOPROL-XL [Concomitant]
  5. ZOCOR [Concomitant]

REACTIONS (6)
  - ACIDOSIS [None]
  - ANAPHYLACTIC REACTION [None]
  - CENTRAL VENOUS PRESSURE DECREASED [None]
  - HYPOTENSION [None]
  - LOW CARDIAC OUTPUT SYNDROME [None]
  - SHOCK [None]
